FAERS Safety Report 20474146 (Version 2)
Quarter: 2022Q2

REPORT INFORMATION
  Report Type: Spontaneous
  Country: US (occurrence: US)
  Receive Date: 20220215
  Receipt Date: 20220415
  Transmission Date: 20220720
  Serious: Yes (Hospitalization)
  Sender: FDA-Public Use
  Company Number: US-NOVARTISPH-NVSC2022US032386

PATIENT
  Sex: Female

DRUGS (1)
  1. KESIMPTA [Suspect]
     Active Substance: OFATUMUMAB
     Indication: Multiple sclerosis
     Dosage: UNK, QMO (20 MG/0.4 ML SUBCUTANEOUSLY EVERY 30 DAYS)
     Route: 058

REACTIONS (2)
  - COVID-19 [Unknown]
  - Acute respiratory failure [Unknown]
